FAERS Safety Report 16984104 (Version 1)
Quarter: 2019Q4

REPORT INFORMATION
  Report Type: Spontaneous
  Country: SE (occurrence: SE)
  Receive Date: 20191101
  Receipt Date: 20191101
  Transmission Date: 20200122
  Serious: Yes (Other)
  Sender: FDA-Public Use
  Company Number: SE-VERTEX PHARMACEUTICALS-2019-010631

PATIENT

DRUGS (1)
  1. ORKAMBI [Suspect]
     Active Substance: IVACAFTOR\LUMACAFTOR
     Indication: CYSTIC FIBROSIS
     Dosage: UNK
     Route: 048
     Dates: end: 201907

REACTIONS (9)
  - Headache [Unknown]
  - Transplant [Unknown]
  - Hypertension [Unknown]
  - Respiration abnormal [Unknown]
  - Hepatic enzyme increased [Unknown]
  - Pregnancy [Unknown]
  - Gastrointestinal disorder [Unknown]
  - Epistaxis [Unknown]
  - Abnormal behaviour [Unknown]
